FAERS Safety Report 13555629 (Version 5)
Quarter: 2017Q3

REPORT INFORMATION
  Report Type: Report from Study
  Country: US (occurrence: US)
  Receive Date: 20170517
  Receipt Date: 20170707
  Transmission Date: 20171127
  Serious: Yes (Other)
  Sender: FDA-Public Use
  Company Number: US-JNJFOC-20170415397

PATIENT
  Sex: Male

DRUGS (1)
  1. STELARA [Suspect]
     Active Substance: USTEKINUMAB
     Indication: CROHN^S DISEASE
     Route: 058

REACTIONS (14)
  - Headache [Unknown]
  - Crohn^s disease [Not Recovered/Not Resolved]
  - Abdominal distension [Unknown]
  - Sensitivity of teeth [Unknown]
  - Back pain [Unknown]
  - Fatigue [Unknown]
  - Rectal abscess [Unknown]
  - Weight increased [Unknown]
  - Neck pain [Unknown]
  - Pain [Unknown]
  - Arthralgia [Unknown]
  - Tongue fungal infection [Unknown]
  - Oral pain [Unknown]
  - Anal fistula [Unknown]
